FAERS Safety Report 8402951-X (Version None)
Quarter: 2012Q2

REPORT INFORMATION
  Report Type: 
  Country: None (occurrence: None)
  Receive Date: 20120601
  Receipt Date: 20120522
  Transmission Date: 20120825
  Serious: Yes (Hospitalization)
  Sender: FDA-Public Use
  Company Number: FR-GLAXOSMITHKLINE-B0802893A

PATIENT
  Sex: Male

DRUGS (1)
  1. ARIXTRA [Suspect]
     Indication: PHLEBITIS
     Dosage: 7.5MG PER DAY
     Route: 058
     Dates: start: 20120410, end: 20120429

REACTIONS (5)
  - SYNCOPE [None]
  - VOMITING [None]
  - HEADACHE [None]
  - OVERDOSE [None]
  - SUBDURAL HAEMATOMA [None]
